FAERS Safety Report 7120692-6 (Version None)
Quarter: 2010Q4

REPORT INFORMATION
  Report Type: 
  Country: None (occurrence: None)
  Receive Date: 20101124
  Receipt Date: 20101101
  Transmission Date: 20110411
  Serious: Yes (Other)
  Sender: FDA-Public Use
  Company Number: US-BAYER-201033840NA

PATIENT
  Age: 24 Year
  Sex: Female
  Weight: 113 kg

DRUGS (9)
  1. OCELLA [Suspect]
     Indication: PRODUCT USED FOR UNKNOWN INDICATION
     Dates: start: 20040301, end: 20060101
  2. YAZ [Suspect]
     Indication: PRODUCT USED FOR UNKNOWN INDICATION
     Dates: start: 20040301, end: 20060101
  3. YASMIN [Suspect]
     Indication: CONTRACEPTION
     Route: 048
     Dates: start: 20040301, end: 20060101
  4. NORVASC [Concomitant]
     Indication: HYPERTENSION
     Dosage: TOTAL DAILY DOSE: 5 MG  UNIT DOSE: 5 MG
     Dates: start: 20030101
  5. SECTRAL [Concomitant]
     Indication: HYPERTENSION
     Dosage: TOTAL DAILY DOSE: 800 MG  UNIT DOSE: 400 MG
     Dates: start: 20030101
  6. VITAMIN C SUPPLEMENT [Concomitant]
     Dates: start: 20000101, end: 20090101
  7. ACEBUTEROL [Concomitant]
     Dosage: TOTAL DAILY DOSE: 800 MG  UNIT DOSE: 400 MG
     Dates: start: 20030101
  8. ACTOS [Concomitant]
     Indication: DIABETES MELLITUS
     Dosage: TOTAL DAILY DOSE: 45 MG  UNIT DOSE: 45 MG
     Dates: start: 20050501, end: 20070101
  9. ASPIRIN [Concomitant]

REACTIONS (8)
  - ABDOMINAL PAIN UPPER [None]
  - BILIARY COLIC [None]
  - CHOLECYSTITIS [None]
  - CHOLELITHIASIS [None]
  - DYSPEPSIA [None]
  - NAUSEA [None]
  - PAIN [None]
  - SYNCOPE [None]
